FAERS Safety Report 5632216-0 (Version None)
Quarter: 2008Q1

REPORT INFORMATION
  Report Type: 
  Country: None (occurrence: None)
  Receive Date: 20080220
  Receipt Date: 20080208
  Transmission Date: 20080703
  Serious: Yes (Death)
  Sender: FDA-Public Use
  Company Number: MX-ROCHE-546878

PATIENT

DRUGS (1)
  1. VALCYTE [Suspect]
     Indication: TRANSPLANT
     Route: 048

REACTIONS (3)
  - BONE MARROW FAILURE [None]
  - LEUKOPENIA [None]
  - TRANSPLANT REJECTION [None]
